FAERS Safety Report 19501312 (Version 1)
Quarter: 2021Q3

REPORT INFORMATION
  Report Type: Spontaneous
  Country: IT (occurrence: IT)
  Receive Date: 20210707
  Receipt Date: 20210707
  Transmission Date: 20211014
  Serious: Yes (Disabling)
  Sender: FDA-Public Use
  Company Number: IT-ROCHE-2861982

PATIENT
  Age: 58 Year
  Sex: Male

DRUGS (1)
  1. AVASTIN [Suspect]
     Active Substance: BEVACIZUMAB
     Indication: PRODUCT USED FOR UNKNOWN INDICATION
     Dosage: ON 01/APR/2021, MOST RECENT DOSE
     Route: 031
     Dates: start: 20210311

REACTIONS (1)
  - Thromboangiitis obliterans [Recovered/Resolved with Sequelae]

NARRATIVE: CASE EVENT DATE: 20210417
